FAERS Safety Report 9447404 (Version 1)
Quarter: 2013Q3

REPORT INFORMATION
  Report Type: Spontaneous
  Country: US (occurrence: US)
  Receive Date: 20130806
  Receipt Date: 20130806
  Transmission Date: 20140515
  Serious: Yes (Hospitalization)
  Sender: FDA-Public Use
  Company Number: FK201302816

PATIENT
  Age: 32 Year
  Sex: Female

DRUGS (3)
  1. INTRALIPID [Suspect]
     Indication: TYPE IV HYPERSENSITIVITY REACTION
     Route: 041
     Dates: start: 20130717, end: 20130717
  2. HEPARIN (HEPARIN) [Concomitant]
  3. SOLU-CORTEF (HYDROCORTISONE SODIUM SUCCINATE)(HYDROCORTISONE SODIUM SUCCINATE) [Concomitant]

REACTIONS (5)
  - Paraesthesia [None]
  - Hypoaesthesia [None]
  - Sensation of pressure [None]
  - Pain in extremity [None]
  - Back pain [None]
